FAERS Safety Report 7749767-5 (Version None)
Quarter: 2011Q3

REPORT INFORMATION
  Report Type: 
  Country: None (occurrence: None)
  Receive Date: 20110914
  Receipt Date: 20110818
  Transmission Date: 20111222
  Serious: Yes (Other)
  Sender: FDA-Public Use
  Company Number: GB-ROCHE-801161

PATIENT
  Age: 85 Year
  Sex: Female

DRUGS (1)
  1. AVASTIN [Suspect]
     Indication: AGE-RELATED MACULAR DEGENERATION
     Route: 031
     Dates: start: 20110624

REACTIONS (4)
  - VISUAL ACUITY REDUCED [None]
  - DEMENTIA [None]
  - EYE INFLAMMATION [None]
  - AMNESIA [None]
